FAERS Safety Report 13999746 (Version 2)
Quarter: 2017Q4

REPORT INFORMATION
  Report Type: Report from Study
  Country: JP (occurrence: JP)
  Receive Date: 20170922
  Receipt Date: 20171108
  Transmission Date: 20180321
  Serious: Yes (Hospitalization)
  Sender: FDA-Public Use
  Company Number: JP-ROCHE-1994334

PATIENT
  Age: 15 Year
  Sex: Male
  Weight: 54 kg

DRUGS (16)
  1. RITUXAN [Suspect]
     Active Substance: RITUXIMAB
     Route: 041
     Dates: start: 20150810, end: 20150810
  2. CELLCEPT [Suspect]
     Active Substance: MYCOPHENOLATE MOFETIL\MYCOPHENOLATE MOFETIL HYDROCHLORIDE
     Indication: PRODUCT USED FOR UNKNOWN INDICATION
     Route: 048
  3. PREDNISOLONE. [Concomitant]
     Active Substance: PREDNISOLONE
     Dosage: 5-60 MG
     Route: 048
     Dates: start: 20160107, end: 20160429
  4. RITUXAN [Suspect]
     Active Substance: RITUXIMAB
     Indication: NEPHROTIC SYNDROME
     Route: 041
     Dates: start: 20150803, end: 20150803
  5. RITUXAN [Suspect]
     Active Substance: RITUXIMAB
     Route: 041
     Dates: start: 20160916, end: 20160916
  6. SULFAMETHOXAZOLE/TRIMETHOPRIM [Suspect]
     Active Substance: SULFAMETHOXAZOLE\TRIMETHOPRIM
     Indication: PRODUCT USED FOR UNKNOWN INDICATION
     Route: 048
     Dates: start: 20160917, end: 20161028
  7. NEORAL [Concomitant]
     Active Substance: CYCLOSPORINE
     Route: 048
     Dates: start: 201207, end: 20161201
  8. POLARAMINE [Concomitant]
     Active Substance: DEXCHLORPHENIRAMINE MALEATE
     Indication: PREMEDICATION
     Dosage: SABSEQUENTLY SHE RECEIVED ON 10/AUG/2015 TO 10/AUG/2015?SABSEQUENTLY RECEIVED ON 01/APR/2015 TO 01/A
     Route: 048
     Dates: start: 20150803, end: 20150803
  9. RITUXAN [Suspect]
     Active Substance: RITUXIMAB
     Route: 041
     Dates: start: 20160401, end: 20160401
  10. CALONAL [Concomitant]
     Active Substance: ACETAMINOPHEN
     Indication: PREMEDICATION
     Dosage: SABSEQUENTLY RECEIVED ON 10/AUG/2015 TO 10/AUG/2015 ? SABSEQUENTLY RECEIVED ON 01/APR/2015 TO 01/APR
     Route: 048
     Dates: start: 20150803, end: 20150803
  11. PRIDOL [Concomitant]
     Active Substance: METHYLPREDNISOLONE SODIUM SUCCINATE
     Dosage: SABSEQUENTLY SHE RECEIVED ON 10/AUG/2015 TO 10/AUG/2015
     Route: 042
     Dates: start: 20150803, end: 20150803
  12. METHYLPREDNISOLONE SODIUM SUCCINATE. [Concomitant]
     Active Substance: METHYLPREDNISOLONE SODIUM SUCCINATE
     Dosage: SABSEQUENTLY SHE RECEIVED ON 16/SEP/2016 TO 16/SEP/2016
     Route: 042
     Dates: start: 20160401, end: 20160401
  13. PREDNISOLONE. [Concomitant]
     Active Substance: PREDNISOLONE
     Route: 048
     Dates: start: 20160531, end: 20161122
  14. CELLCEPT [Suspect]
     Active Substance: MYCOPHENOLATE MOFETIL\MYCOPHENOLATE MOFETIL HYDROCHLORIDE
     Route: 048
  15. PREDNISOLONE. [Concomitant]
     Active Substance: PREDNISOLONE
     Indication: NEPHROTIC SYNDROME
     Dosage: 5 TO 60 MG
     Route: 048
     Dates: start: 20150701, end: 20150708
  16. PREDNISOLONE. [Concomitant]
     Active Substance: PREDNISOLONE
     Dosage: 5-60 MG
     Route: 048
     Dates: start: 20170210, end: 20170516

REACTIONS (2)
  - Pyrexia [Recovered/Resolved]
  - Agranulocytosis [Recovered/Resolved]

NARRATIVE: CASE EVENT DATE: 20161025
